FAERS Safety Report 6409366-4 (Version None)
Quarter: 2009Q4

REPORT INFORMATION
  Report Type: 
  Country: None (occurrence: None)
  Receive Date: 20091021
  Receipt Date: 20091007
  Transmission Date: 20100525
  Serious: Yes (Death)
  Sender: FDA-Public Use
  Company Number: DE-GENENTECH-292615

PATIENT
  Age: 71 Year
  Sex: Female

DRUGS (1)
  1. RITUXIMAB [Suspect]
     Indication: CHRONIC LYMPHOCYTIC LEUKAEMIA
     Dosage: 920 MG, UNK
     Route: 042
     Dates: start: 20090216

REACTIONS (2)
  - IMMUNOGLOBULINS DECREASED [None]
  - PNEUMONIA [None]
